FAERS Safety Report 5443124-2 (Version None)
Quarter: 2007Q3

REPORT INFORMATION
  Report Type: 
  Country: None (occurrence: None)
  Receive Date: 20070830
  Receipt Date: 20070822
  Transmission Date: 20080115
  Serious: Yes (Hospitalization)
  Sender: FDA-Public Use
  Company Number: 2006BI002445

PATIENT
  Age: 64 Year
  Sex: Male

DRUGS (1)
  1. AVONEX [Suspect]
     Indication: MULTIPLE SCLEROSIS
     Dosage: 30 UG; QW; IM
     Route: 030
     Dates: start: 19960101

REACTIONS (10)
  - BLOOD DISORDER [None]
  - BURN INFECTION [None]
  - CULTURE WOUND POSITIVE [None]
  - IMPAIRED HEALING [None]
  - INFECTION [None]
  - SCAR [None]
  - SKIN GRAFT [None]
  - STAPHYLOCOCCAL INFECTION [None]
  - URINARY TRACT INFECTION [None]
  - WOUND INFECTION [None]
